FAERS Safety Report 6292861-9 (Version None)
Quarter: 2009Q3

REPORT INFORMATION
  Report Type: 
  Country: None (occurrence: None)
  Receive Date: 20090731
  Receipt Date: 20090722
  Transmission Date: 20100115
  Serious: Yes (Hospitalization, Other)
  Sender: FDA-Public Use
  Company Number: PHHY2009BR30775

PATIENT
  Sex: Male
  Weight: 49 kg

DRUGS (10)
  1. DIOVAN [Suspect]
     Indication: BLOOD PRESSURE
     Dosage: 1 TABLET (160 MG) DAILY
     Route: 048
     Dates: start: 20090301
  2. DIOVAN [Suspect]
     Dosage: 1 TABLET (80 MG) DAILY
  3. SUPRADYN [Concomitant]
     Dosage: ONE TABLET DAILY
     Route: 048
     Dates: start: 20090522
  4. TICLOPIDINE HYDROCHLORIDE [Concomitant]
     Indication: NERVOUS SYSTEM DISORDER
     Dosage: 1 TABLET (250 MG) DAILY
     Route: 048
     Dates: start: 20090501
  5. BISOPROLOL FUMARATE [Concomitant]
     Indication: CARDIAC DISORDER
     Dosage: 1 TABLET (1.25 MG) DAILY
     Route: 048
     Dates: start: 20090401
  6. SIMVASTATIN [Concomitant]
     Dosage: 1 TABLET (20 MG) DAILY
     Route: 048
     Dates: start: 20090401
  7. CLOPIDOGREL BISULFATE [Concomitant]
     Dosage: 1 TABLET (75 MG) DAILY
     Route: 048
     Dates: start: 20090501
  8. FINASTERIDE [Concomitant]
     Indication: PROSTATIC DISORDER
     Dosage: 1 TABLET  (1 MG) DAILY
     Route: 048
     Dates: start: 20090717
  9. OMEPRAZOLE [Concomitant]
     Indication: GASTRIC DISORDER
     Dosage: ONE CAPSULE IN FASTING
     Route: 048
  10. RIVOTRIL [Concomitant]
     Indication: INSOMNIA
     Dosage: 1 TABLET  (0.25 MG) AT NIGHT
     Route: 048

REACTIONS (11)
  - BLOOD PRESSURE DECREASED [None]
  - CEREBROVASCULAR ACCIDENT [None]
  - FORMICATION [None]
  - GASTROINTESTINAL DISORDER [None]
  - INFARCTION [None]
  - LABYRINTHITIS [None]
  - LUNG DISORDER [None]
  - MALAISE [None]
  - PERIPHERAL COLDNESS [None]
  - PROSTATIC DISORDER [None]
  - RENAL DISORDER [None]
